FAERS Safety Report 5149175-X (Version None)
Quarter: 2006Q4

REPORT INFORMATION
  Report Type: 
  Country: None (occurrence: None)
  Receive Date: 20061113
  Receipt Date: 20060824
  Transmission Date: 20070319
  Serious: No
  Sender: FDA-Public Use
  Company Number: US-GLAXOSMITHKLINE-A0618005A

PATIENT
  Age: 65 Year
  Sex: Male

DRUGS (10)
  1. COREG [Suspect]
     Indication: HYPERTENSION
     Dosage: 3.125MG TWICE PER DAY
     Route: 048
     Dates: start: 20060801
  2. NORVASC [Concomitant]
  3. NEXIUM [Concomitant]
  4. COZAAR [Concomitant]
  5. PLAVIX [Concomitant]
  6. CRESTOR [Concomitant]
  7. ASPIRIN [Concomitant]
  8. NOVOLOG [Concomitant]
  9. LANTUS [Concomitant]
  10. COUMADIN [Concomitant]

REACTIONS (1)
  - BLOOD GLUCOSE INCREASED [None]
